FAERS Safety Report 4608429-3 (Version None)
Quarter: 2005Q1

REPORT INFORMATION
  Report Type: 
  Country: None (occurrence: None)
  Receive Date: 20050311
  Receipt Date: 20050311
  Transmission Date: 20050727
  Serious: Yes (Life-Threatening)
  Sender: FDA-Public Use
  Company Number: None

PATIENT
  Age: 64 Year
  Sex: Female
  Weight: 55.2 kg

DRUGS (3)
  1. TARCEVA [Suspect]
     Indication: METASTASES TO LUNG
     Dosage: 150MG ONCE DAILY ORAL
     Route: 048
     Dates: start: 20050119, end: 20050220
  2. TARCEVA [Suspect]
     Indication: PANCREATIC CARCINOMA
     Dosage: 150MG ONCE DAILY ORAL
     Route: 048
     Dates: start: 20050119, end: 20050220
  3. GEMCITABINE [Concomitant]

REACTIONS (2)
  - LUNG DISORDER [None]
  - PNEUMONIA [None]
